FAERS Safety Report 7445597-2 (Version None)
Quarter: 2011Q2

REPORT INFORMATION
  Report Type: 
  Country: None (occurrence: None)
  Receive Date: 20110429
  Receipt Date: 20110425
  Transmission Date: 20111010
  Serious: Yes (Other)
  Sender: FDA-Public Use
  Company Number: JP-ROCHE-760890

PATIENT
  Age: 36 Year
  Sex: Female
  Weight: 31.7 kg

DRUGS (4)
  1. ZONISAMIDE [Interacting]
     Indication: CONVULSION
     Route: 065
  2. VECURONIUM BROMIDE [Interacting]
     Indication: ANAESTHESIA
     Route: 065
  3. CLONAZEPAM [Suspect]
     Indication: CONVULSION
     Route: 065
  4. PHENYTOIN [Interacting]
     Indication: CONVULSION
     Dosage: GIVEN IN THE EVENING
     Route: 065

REACTIONS (3)
  - DRUG INTERACTION [None]
  - DRUG RESISTANCE [None]
  - DRUG LEVEL INCREASED [None]
